FAERS Safety Report 17841044 (Version 1)
Quarter: 2020Q2

REPORT INFORMATION
  Report Type: Spontaneous
  Country: CA (occurrence: CA)
  Receive Date: 20200529
  Receipt Date: 20200529
  Transmission Date: 20200714
  Serious: Yes (Other)
  Sender: FDA-Public Use
  Company Number: CA-ROCHE-2602978

PATIENT
  Age: 46 Year
  Sex: Male

DRUGS (3)
  1. MYCOPHENOLATE MOFETIL. [Suspect]
     Active Substance: MYCOPHENOLATE MOFETIL
     Indication: GLOMERULONEPHRITIS MINIMAL LESION
     Route: 065
  2. CYCLOPHOSPHAMIDE. [Suspect]
     Active Substance: CYCLOPHOSPHAMIDE
     Indication: GLOMERULONEPHRITIS MINIMAL LESION
     Route: 065
  3. TACROLIMUS. [Suspect]
     Active Substance: TACROLIMUS
     Indication: GLOMERULONEPHRITIS MINIMAL LESION
     Route: 065

REACTIONS (6)
  - Diarrhoea [Unknown]
  - Peritonitis bacterial [Unknown]
  - Product use in unapproved indication [Unknown]
  - Abdominal pain [Unknown]
  - Peritonitis pneumococcal [Unknown]
  - Vomiting [Unknown]
